FAERS Safety Report 8122156-X (Version None)
Quarter: 2012Q1

REPORT INFORMATION
  Report Type: 
  Country: None (occurrence: None)
  Receive Date: 20120208
  Receipt Date: 20120131
  Transmission Date: 20120608
  Serious: Yes (Other)
  Sender: FDA-Public Use
  Company Number: GB-JNJFOC-20120201364

PATIENT

DRUGS (1)
  1. STELARA [Suspect]
     Indication: PUSTULAR PSORIASIS
     Route: 058

REACTIONS (2)
  - PSORIASIS [None]
  - OFF LABEL USE [None]
